FAERS Safety Report 5273562-2 (Version None)
Quarter: 2007Q1

REPORT INFORMATION
  Report Type: 
  Country: None (occurrence: None)
  Receive Date: 20070320
  Receipt Date: 20070305
  Transmission Date: 20070707
  Serious: Yes (Life-Threatening)
  Sender: FDA-Public Use
  Company Number: 15631

PATIENT
  Age: 75 Year
  Sex: Male

DRUGS (3)
  1. CYTARABINE [Suspect]
     Indication: ACUTE MYELOID LEUKAEMIA
     Dosage: 38 MG UNK SC
     Route: 058
     Dates: start: 20061212
  2. RANITIDINE [Concomitant]
  3. ENALAPRIL MALEATE [Concomitant]

REACTIONS (1)
  - INTESTINAL HAEMORRHAGE [None]
